FAERS Safety Report 5848970-9 (Version None)
Quarter: 2008Q3

REPORT INFORMATION
  Report Type: 
  Country: None (occurrence: None)
  Receive Date: 20080819
  Receipt Date: 20080814
  Transmission Date: 20090109
  Serious: Yes (Death, Other)
  Sender: FDA-Public Use
  Company Number: PHBS2008DE05416

PATIENT
  Sex: Male

DRUGS (5)
  1. CYCLOSPORINE [Suspect]
     Indication: STEM CELL TRANSPLANT
  2. CYCLOSPORINE [Suspect]
     Indication: ACUTE GRAFT VERSUS HOST DISEASE
  3. STEROIDS NOS [Suspect]
     Indication: ACUTE GRAFT VERSUS HOST DISEASE
  4. RAPAMYCIN [Suspect]
     Indication: ACUTE GRAFT VERSUS HOST DISEASE
  5. METHOTREXATE [Concomitant]
     Indication: STEM CELL TRANSPLANT

REACTIONS (10)
  - BK VIRUS INFECTION [None]
  - BRAIN OEDEMA [None]
  - CONVULSION [None]
  - CYSTITIS HAEMORRHAGIC [None]
  - ENCEPHALITIS VIRAL [None]
  - ENCEPHALOPATHY [None]
  - GRAFT VERSUS HOST DISEASE [None]
  - PNEUMONIA ASPIRATION [None]
  - URETERAL STENT INSERTION [None]
  - URETHRAL OBSTRUCTION [None]
